FAERS Safety Report 9840370 (Version 1)
Quarter: 2013Q4

REPORT INFORMATION
  Report Type: Spontaneous
  Country: US (occurrence: None)
  Receive Date: 20131211
  Receipt Date: 20131211
  Transmission Date: 20140711
  Serious: Yes (Other)
  Sender: FDA-Public Use
  Company Number: ALL1-2012-04311

PATIENT
  Age: 50 Year
  Sex: Female

DRUGS (2)
  1. FIRAZYR [Suspect]
     Indication: HEREDITARY ANGIOEDEMA
     Dosage: AS RE^D
     Route: 058
     Dates: start: 201202
  2. IMURAN [Suspect]
     Indication: PRODUCT USED FOR UNKNOWN INDICATION
     Dosage: 1X/DAY
     Dates: end: 2012

REACTIONS (1)
  - Transaminases increased [None]
